FAERS Safety Report 8840762 (Version 1)
Quarter: 2012Q4

REPORT INFORMATION
  Report Type: 
  Country: US (occurrence: US)
  Receive Date: 20121015
  Receipt Date: 20121015
  Transmission Date: 20130627
  Serious: Yes (Hospitalization)
  Sender: FDA-Public Use
  Company Number: US-ROCHE-1109808

PATIENT
  Sex: Male

DRUGS (2)
  1. NUTROPIN [Suspect]
     Indication: DWARFISM
     Route: 065
  2. PROTROPIN [Suspect]
     Indication: DWARFISM
     Route: 065

REACTIONS (3)
  - Malaise [Unknown]
  - Vomiting [Unknown]
  - Headache [Unknown]
